FAERS Safety Report 23264782 (Version 1)
Quarter: 2023Q4

REPORT INFORMATION
  Report Type: Report from Study
  Country: US (occurrence: US)
  Receive Date: 20231206
  Receipt Date: 20231206
  Transmission Date: 20240110
  Serious: Yes (Other)
  Sender: FDA-Public Use
  Company Number: US-002147023-NVSC2023US254846

PATIENT
  Sex: Male

DRUGS (1)
  1. ENTRESTO [Suspect]
     Active Substance: SACUBITRIL\VALSARTAN
     Indication: Product used for unknown indication
     Dosage: UNK
     Route: 065

REACTIONS (6)
  - Anaphylactic reaction [Unknown]
  - Swollen tongue [Unknown]
  - Pharyngeal swelling [Unknown]
  - Dysphagia [Unknown]
  - Hypoaesthesia [Unknown]
  - Wrong technique in product usage process [Unknown]
